FAERS Safety Report 7709797-6 (Version None)
Quarter: 2011Q3

REPORT INFORMATION
  Report Type: 
  Country: None (occurrence: None)
  Receive Date: 20110825
  Receipt Date: 20110823
  Transmission Date: 20111222
  Serious: Yes (Other)
  Sender: FDA-Public Use
  Company Number: US-PFIZER INC-2011195634

PATIENT
  Sex: Female
  Weight: 92.971 kg

DRUGS (7)
  1. GLUCOPHAGE [Concomitant]
     Indication: DIABETES MELLITUS
     Dosage: 1000 MG, 3X/DAY
  2. CYMBALTA [Concomitant]
     Indication: PAIN
     Dosage: UNK
  3. CRESTOR [Concomitant]
     Dosage: UNK
  4. BENTYL [Concomitant]
     Indication: DIARRHOEA
     Dosage: 10 MG, UNK
  5. LYRICA [Suspect]
     Indication: FIBROMYALGIA
     Dosage: 150 MG, 2X/DAY
     Route: 048
     Dates: start: 20060401
  6. WELLBUTRIN [Concomitant]
     Dosage: 300 MG, 1X/DAY
  7. PROTONIX [Concomitant]
     Dosage: UNK, 1X/DAY

REACTIONS (5)
  - PAIN [None]
  - DYSPNOEA [None]
  - INSOMNIA [None]
  - CHOKING SENSATION [None]
  - SUICIDAL IDEATION [None]
